FAERS Safety Report 20381049 (Version 1)
Quarter: 2022Q1

REPORT INFORMATION
  Report Type: Spontaneous
  Country: AR (occurrence: AR)
  Receive Date: 20220127
  Receipt Date: 20220127
  Transmission Date: 20220423
  Serious: Yes (Other)
  Sender: FDA-Public Use
  Company Number: AR-TAKEDA-2022TUS004382

PATIENT
  Age: 51 Year
  Sex: Male

DRUGS (1)
  1. MESALAMINE [Suspect]
     Active Substance: MESALAMINE
     Indication: Ulcer
     Dosage: 3200 MILLIGRAM, QD
     Route: 065

REACTIONS (2)
  - Ulcer haemorrhage [Unknown]
  - Product use in unapproved indication [Unknown]
